FAERS Safety Report 9998050 (Version 2)
Quarter: 2014Q2

REPORT INFORMATION
  Report Type: Spontaneous
  Country: JP (occurrence: JP)
  Receive Date: 20140311
  Receipt Date: 20140403
  Transmission Date: 20141212
  Serious: Yes (Death)
  Sender: FDA-Public Use
  Company Number: PHHY2014JP029160

PATIENT
  Age: 11 Month
  Sex: Female

DRUGS (5)
  1. NEORAL [Suspect]
     Indication: THROMBOCYTOPENIA NEONATAL
  2. RITUXIMAB [Suspect]
     Indication: THROMBOCYTOPENIA NEONATAL
     Dosage: 375 MG/M2, 4 TIMES A WEEK
     Route: 041
  3. PREDNISOLONE [Suspect]
     Indication: THROMBOCYTOPENIA NEONATAL
  4. IMMUNOGLOBULIN I.V [Suspect]
     Indication: THROMBOCYTOPENIA NEONATAL
  5. CEPHARANTHINE [Suspect]
     Indication: THROMBOCYTOPENIA NEONATAL

REACTIONS (3)
  - Haemorrhage intracranial [Fatal]
  - Erythema [Unknown]
  - Drug ineffective [Unknown]
